FAERS Safety Report 5622841-5 (Version None)
Quarter: 2008Q1

REPORT INFORMATION
  Report Type: 
  Country: None (occurrence: None)
  Receive Date: 20080212
  Receipt Date: 20080130
  Transmission Date: 20080703
  Serious: Yes (Hospitalization)
  Sender: FDA-Public Use
  Company Number: US-ELI_LILLY_AND_COMPANY-US200512003522

PATIENT
  Sex: Male

DRUGS (19)
  1. ZYPREXA [Suspect]
     Indication: BIPOLAR I DISORDER
     Dosage: 10 MG, DAILY (1/D)
     Route: 048
  2. ZYPREXA [Suspect]
     Dosage: 5 MG, DAILY (1/D)
     Route: 048
     Dates: start: 20030101
  3. ZYPREXA [Suspect]
     Dosage: 7.5 MG, DAILY (1/D)
     Route: 048
  4. ZYPREXA [Suspect]
     Dosage: 15 MG, DAILY (1/D)
     Route: 048
  5. ZYPREXA [Suspect]
     Dates: start: 20020101
  6. ZYPREXA [Suspect]
     Dosage: 25 MG, UNK
     Dates: start: 20071101
  7. SEROQUEL [Concomitant]
     Dates: start: 20070801
  8. LAMICTAL [Concomitant]
     Dosage: 25 MG, UNK
     Dates: start: 20070201
  9. LAMICTAL [Concomitant]
     Dates: start: 20070801
  10. GEODON [Concomitant]
     Dosage: 60 MG, UNK
     Dates: start: 20070401, end: 20070101
  11. ABILIFY [Concomitant]
     Dosage: 5 MG, UNK
     Dates: start: 20070401, end: 20070101
  12. DEPAKOTE [Concomitant]
     Dates: start: 20061001, end: 20070101
  13. BENADRYL [Concomitant]
     Indication: SLEEP DISORDER
     Dates: start: 20070801
  14. AMBIEN [Concomitant]
     Dates: start: 20070401
  15. CLONIDINE [Concomitant]
     Dates: start: 20070401
  16. CLOZAPINE [Concomitant]
     Dates: start: 20070101, end: 20070101
  17. CLOZAPINE [Concomitant]
     Dates: start: 20070801
  18. KLONOPIN [Concomitant]
     Dates: start: 20070101
  19. TEGRETOL [Concomitant]
     Dates: start: 20070101

REACTIONS (18)
  - ABNORMAL BEHAVIOUR [None]
  - APATHY [None]
  - ASTHENIA [None]
  - DYSKINESIA [None]
  - DYSPNOEA [None]
  - FAECES DISCOLOURED [None]
  - GAIT DISTURBANCE [None]
  - HAEMOPTYSIS [None]
  - HYPOKINESIA [None]
  - INCONTINENCE [None]
  - MANIA [None]
  - OVERDOSE [None]
  - PNEUMONIA [None]
  - PULMONARY MASS [None]
  - PYREXIA [None]
  - RECTAL HAEMORRHAGE [None]
  - SKIN REACTION [None]
  - SOMNOLENCE [None]
